FAERS Safety Report 7475724-2 (Version None)
Quarter: 2011Q2

REPORT INFORMATION
  Report Type: 
  Country: None (occurrence: None)
  Receive Date: 20110512
  Receipt Date: 20110509
  Transmission Date: 20111010
  Serious: Yes (Other)
  Sender: FDA-Public Use
  Company Number: HR-ABBOTT-11P-216-0724519-00

PATIENT
  Age: 36 Year
  Sex: Female

DRUGS (4)
  1. LAMOTRIGINE [Suspect]
     Indication: EPILEPSY
     Dosage: 250 MG DAILY
     Route: 048
     Dates: start: 20101001
  2. DEPAKENE [Suspect]
     Indication: EPILEPSY
     Dosage: 250 MG DAILY
     Route: 048
     Dates: start: 20101001
  3. TOPAMAX [Suspect]
     Indication: EPILEPSY
     Dosage: 150 MG DAILY
     Route: 048
     Dates: start: 20101001
  4. NORMABEL [Concomitant]
     Indication: PRODUCT USED FOR UNKNOWN INDICATION
     Dates: start: 20101001

REACTIONS (1)
  - OSTEOPENIA [None]
